FAERS Safety Report 5636446-3 (Version None)
Quarter: 2008Q1

REPORT INFORMATION
  Report Type: 
  Country: None (occurrence: None)
  Receive Date: 20080225
  Receipt Date: 20080211
  Transmission Date: 20080703
  Serious: Yes (Other)
  Sender: FDA-Public Use
  Company Number: SE-TYCO HEALTHCARE/MALLINCKRODT-T200800268

PATIENT

DRUGS (2)
  1. SODIUM IODIDE I 131 [Suspect]
     Indication: THYROID CANCER
     Dosage: 3700 MBQ, UNK
     Dates: start: 20050101, end: 20050101
  2. THYROID HORMONES [Concomitant]
     Indication: HORMONE REPLACEMENT THERAPY
     Dosage: T3 W/DRAWN 4 WKS AND HORMONES 2 WKS PRIOR TO EVENT

REACTIONS (2)
  - ABORTION INDUCED [None]
  - DRUG EXPOSURE DURING PREGNANCY [None]
